FAERS Safety Report 25041987 (Version 3)
Quarter: 2025Q2

REPORT INFORMATION
  Report Type: Spontaneous
  Country: JP (occurrence: JP)
  Receive Date: 20250305
  Receipt Date: 20250527
  Transmission Date: 20250717
  Serious: Yes (Death)
  Sender: ELI LILLY AND COMPANY
  Company Number: JP-NShinyaku-EVA202407067ZZLILLY

PATIENT
  Age: 73 Year
  Sex: Male
  Weight: 44.7 kg

DRUGS (10)
  1. TADALAFIL [Suspect]
     Active Substance: TADALAFIL
     Indication: Pulmonary arterial hypertension
     Dosage: 20 MG, DAILY
     Route: 048
  2. TADALAFIL [Suspect]
     Active Substance: TADALAFIL
     Dosage: 40 MG, DAILY
     Route: 048
  3. UPTRAVI [Concomitant]
     Active Substance: SELEXIPAG
     Indication: Pulmonary arterial hypertension
     Dosage: 0.2 MG, BID
     Route: 048
     Dates: start: 20231129
  4. UPTRAVI [Concomitant]
     Active Substance: SELEXIPAG
     Dosage: 0.4 MG, BID
     Route: 048
  5. AZOSEMIDE [Concomitant]
     Active Substance: AZOSEMIDE
  6. AZOSEMIDE [Concomitant]
     Active Substance: AZOSEMIDE
  7. EPLERENONE [Concomitant]
     Active Substance: EPLERENONE
  8. EPLERENONE [Concomitant]
     Active Substance: EPLERENONE
  9. UMECLIDINIUM BROMIDE\VILANTEROL TRIFENATATE [Concomitant]
     Active Substance: UMECLIDINIUM BROMIDE\VILANTEROL TRIFENATATE
  10. OFEV [Concomitant]
     Active Substance: NINTEDANIB

REACTIONS (3)
  - Death [Fatal]
  - Pneumonia [Recovered/Resolved]
  - Pneumonia [Recovered/Resolved]
